FAERS Safety Report 10145690 (Version 2)
Quarter: 2014Q2

REPORT INFORMATION
  Report Type: Spontaneous
  Country: US (occurrence: None)
  Receive Date: 20140429
  Receipt Date: 20140507
  Transmission Date: 20141212
  Serious: Yes (Hospitalization)
  Sender: FDA-Public Use
  Company Number: AMAG201400099

PATIENT
  Age: 93 Year
  Sex: Male

DRUGS (15)
  1. FERAHEME [Suspect]
     Indication: IRON DEFICIENCY ANAEMIA
     Dosage: 6 ML (180 MG), SINGLE, IV PUSH
     Route: 042
     Dates: start: 20140408, end: 20140408
  2. ALBUTEROL [Concomitant]
  3. ASCORBIC ACID [Concomitant]
  4. CITALOPRAM [Concomitant]
  5. CYANOCOBALAMIN [Concomitant]
  6. DOXYCYCLINE [Concomitant]
  7. FERROUS SULFATE EXSICCATED [Concomitant]
  8. FUROSEMIDE [Concomitant]
  9. AMARYL [Concomitant]
  10. MAGNESIUM OXIDE [Concomitant]
  11. MULTIVITAMIN [Concomitant]
  12. NITROGLYCERINE [Concomitant]
  13. POTASSIUM CHLORIDE [Concomitant]
  14. SIMVASTATIN [Concomitant]
  15. TIOTROPLUM [Concomitant]

REACTIONS (7)
  - Bradypnoea [None]
  - Incontinence [None]
  - Unresponsive to stimuli [None]
  - Mental status changes [None]
  - Hypersensitivity [None]
  - Atrial fibrillation [None]
  - Ventricular extrasystoles [None]
